FAERS Safety Report 15343336 (Version 2)
Quarter: 2018Q3

REPORT INFORMATION
  Report Type: Report from Study
  Country: US (occurrence: DE)
  Receive Date: 20180903
  Receipt Date: 20180914
  Transmission Date: 20181010
  Serious: Yes (Hospitalization, Other)
  Sender: FDA-Public Use
  Company Number: DE-TEVA-2018-DE-950918

PATIENT
  Age: 79 Year
  Sex: Female
  Weight: 66 kg

DRUGS (10)
  1. LETROZOLE. [Suspect]
     Active Substance: LETROZOLE
     Indication: BREAST CANCER
     Dosage: 2.5 MILLIGRAM DAILY;
     Route: 048
     Dates: start: 20170206
  2. PALBOCICLIB [Suspect]
     Active Substance: PALBOCICLIB
     Indication: BREAST CANCER
     Dosage: 125 MILLIGRAM DAILY;
     Route: 048
     Dates: start: 20170217
  3. PALBOCICLIB [Suspect]
     Active Substance: PALBOCICLIB
     Dosage: 125 MILLIGRAM DAILY;
     Route: 048
     Dates: start: 20170206
  4. GABAPENTIN BETA [Concomitant]
     Indication: INFECTION
     Route: 048
     Dates: start: 20170427, end: 20170427
  5. LETROZOLE. [Concomitant]
     Active Substance: LETROZOLE
     Indication: BREAST CANCER
     Dosage: 2.5 MILLIGRAM DAILY;
     Route: 048
     Dates: start: 20170217
  6. ZOMETA [Suspect]
     Active Substance: ZOLEDRONIC ACID
     Indication: BREAST CANCER METASTATIC
  7. NOVAMINSULFON?RATIOPHARM [Concomitant]
     Active Substance: METAMIZOLE
     Indication: BONE PAIN
     Route: 065
     Dates: start: 20170109
  8. ZOMETA [Suspect]
     Active Substance: ZOLEDRONIC ACID
     Indication: METASTASES TO BONE
     Route: 042
     Dates: start: 20170121
  9. VIGANTOLETTEN [Concomitant]
     Active Substance: CHOLECALCIFEROL
     Indication: PROPHYLAXIS
     Route: 065
     Dates: start: 20170109
  10. PENICILLIN V?RATIOPHARM [Concomitant]
     Active Substance: PENICILLIN V
     Indication: INFECTION
     Route: 065
     Dates: start: 20170411, end: 20170421

REACTIONS (1)
  - Osteonecrosis of jaw [Recovered/Resolved]

NARRATIVE: CASE EVENT DATE: 20180302
